FAERS Safety Report 7215105-X (Version None)
Quarter: 2011Q1

REPORT INFORMATION
  Report Type: 
  Country: None (occurrence: None)
  Receive Date: 20110107
  Receipt Date: 20100909
  Transmission Date: 20110831
  Serious: No
  Sender: FDA-Public Use
  Company Number: A0877691A

PATIENT
  Age: 75 Year
  Sex: Male

DRUGS (1)
  1. LOVAZA [Suspect]
     Indication: HIGH DENSITY LIPOPROTEIN DECREASED
     Dosage: 4CAP PER DAY
     Route: 048
     Dates: start: 20100808, end: 20100821

REACTIONS (1)
  - MEDICAL DEVICE DISCOMFORT [None]
